FAERS Safety Report 7238055-1 (Version None)
Quarter: 2011Q1

REPORT INFORMATION
  Report Type: 
  Country: None (occurrence: None)
  Receive Date: 20110121
  Receipt Date: 20110117
  Transmission Date: 20110831
  Serious: Yes (Hospitalization)
  Sender: FDA-Public Use
  Company Number: B0641380A

PATIENT
  Sex: Female

DRUGS (14)
  1. PARIET [Concomitant]
     Route: 065
     Dates: end: 20100219
  2. TROSPIUM CHLORIDE [Concomitant]
     Dosage: 1UNIT PER DAY
     Route: 065
  3. AUGMENTIN '125' [Suspect]
     Dosage: 2G PER DAY
     Route: 042
     Dates: start: 20100219, end: 20100223
  4. ZOFENOPRIL [Concomitant]
     Route: 065
  5. TRAMADOL [Concomitant]
     Dosage: 50MG THREE TIMES PER DAY
  6. VASTAREL [Concomitant]
     Route: 065
  7. KARDEGIC [Concomitant]
     Route: 065
  8. ENALAPRIL [Concomitant]
     Route: 065
  9. NEXIUM [Suspect]
     Dosage: 1TAB PER DAY
     Route: 065
     Dates: start: 20100219, end: 20100223
  10. TAHOR [Concomitant]
     Route: 065
  11. FORLAX [Concomitant]
     Route: 065
  12. HYDROCHLOROTHIAZIDE [Concomitant]
     Route: 065
  13. DAFALGAN [Concomitant]
     Route: 065
  14. LEXOMIL [Concomitant]
     Route: 065

REACTIONS (2)
  - BLOOD CREATINE INCREASED [None]
  - RENAL FAILURE [None]
